FAERS Safety Report 9020732 (Version 1)
Quarter: 2013Q1

REPORT INFORMATION
  Report Type: Spontaneous
  Country: US (occurrence: US)
  Receive Date: 20130119
  Receipt Date: 20130119
  Transmission Date: 20140127
  Serious: Yes (Disabling)
  Sender: FDA-Public Use
  Company Number: US-ALLERGAN-1205419US

PATIENT
  Sex: Female

DRUGS (7)
  1. BOTOX? [Suspect]
     Indication: MIGRAINE
     Dosage: 65 UNITS, SINGLE
     Route: 030
     Dates: start: 20120411, end: 20120411
  2. IMITREX [Concomitant]
     Indication: MIGRAINE
     Dosage: 100 MG, PRN
  3. TOPAMAX [Concomitant]
     Indication: MIGRAINE
     Dosage: 75 MG, BID
  4. SEROQUEL [Concomitant]
     Indication: BIPOLAR DISORDER
     Dosage: 150 MG, QHS
  5. EFFEXOR XR [Concomitant]
     Indication: DEPRESSION
     Dosage: 150 MG, QHS
  6. CLONAZEPAM [Concomitant]
     Indication: ANXIETY
     Dosage: 1 MG, PRN
  7. PHENERGAN [Concomitant]
     Indication: NAUSEA
     Dosage: UNK

REACTIONS (4)
  - Headache [Not Recovered/Not Resolved]
  - Nausea [Recovering/Resolving]
  - Injection site pain [Not Recovered/Not Resolved]
  - Vomiting [Recovering/Resolving]
